FAERS Safety Report 19056141 (Version 1)
Quarter: 2021Q1

REPORT INFORMATION
  Report Type: Spontaneous
  Country: US (occurrence: US)
  Receive Date: 20210324
  Receipt Date: 20210324
  Transmission Date: 20210420
  Serious: No
  Sender: FDA-Public Use
  Company Number: US-B.I. PHARMACEUTICALS,INC./RIDGEFIELD-2021-BI-090862

PATIENT
  Age: 74 Year
  Sex: Female

DRUGS (4)
  1. PEPCIDIN [Concomitant]
     Indication: GASTROOESOPHAGEAL REFLUX DISEASE
     Dosage: 10 MG BID
  2. SPIRIVA [Suspect]
     Active Substance: TIOTROPIUM BROMIDE MONOHYDRATE
     Indication: SCAR
     Dosage: 2.5MCG TWO INHALATIONS DAILY
     Dates: start: 20210309
  3. VITAMIN D [ERGOCALCIFEROL] [Concomitant]
     Active Substance: ERGOCALCIFEROL
     Indication: PRODUCT USED FOR UNKNOWN INDICATION
     Dosage: 1000 MG DAILY
  4. SPIRIVA [Suspect]
     Active Substance: TIOTROPIUM BROMIDE MONOHYDRATE
     Indication: INFECTION

REACTIONS (6)
  - Dizziness [Recovered/Resolved]
  - Amnesia [Unknown]
  - Headache [Recovered/Resolved]
  - Dry mouth [Recovered/Resolved]
  - Off label use [Not Recovered/Not Resolved]
  - Nasal dryness [Recovered/Resolved]

NARRATIVE: CASE EVENT DATE: 20210309
